FAERS Safety Report 10017304 (Version 1)
Quarter: 2014Q1

REPORT INFORMATION
  Report Type: Spontaneous
  Country: US (occurrence: None)
  Receive Date: 20140313
  Receipt Date: 20140313
  Transmission Date: 20141002
  Serious: Yes (Other)
  Sender: FDA-Public Use
  Company Number: None

PATIENT
  Age: 63 Year
  Sex: Female
  Weight: 71.67 kg

DRUGS (1)
  1. ATORVASTIN [Suspect]
     Indication: VASCULAR GRAFT
     Dosage: 1X DAILY
     Route: 048

REACTIONS (4)
  - Diplopia [None]
  - Amnesia [None]
  - Hypoaesthesia [None]
  - Blood cholesterol increased [None]
